FAERS Safety Report 22032906 (Version 1)
Quarter: 2023Q1

REPORT INFORMATION
  Report Type: Spontaneous
  Country: US (occurrence: US)
  Receive Date: 20230224
  Receipt Date: 20230224
  Transmission Date: 20230417
  Serious: No
  Sender: FDA-Public Use
  Company Number: US-PERRIGO-22US003469

PATIENT
  Age: 65 Year
  Sex: Female
  Weight: 61.224 kg

DRUGS (2)
  1. LORATADINE AND PSEUDOEPHEDRINE SULFATE [Suspect]
     Active Substance: LORATADINE\PSEUDOEPHEDRINE SULFATE
     Indication: Paranasal sinus discomfort
     Dosage: 1 TABLET, SINGLE
     Route: 048
     Dates: start: 20220228, end: 20220228
  2. LORATADINE AND PSEUDOEPHEDRINE SULFATE [Suspect]
     Active Substance: LORATADINE\PSEUDOEPHEDRINE SULFATE
     Indication: Chills

REACTIONS (3)
  - Feeling abnormal [Unknown]
  - Drug ineffective [Unknown]
  - Off label use [Unknown]

NARRATIVE: CASE EVENT DATE: 20220228
